FAERS Safety Report 23152896 (Version 1)
Quarter: 2023Q4

REPORT INFORMATION
  Report Type: Spontaneous
  Country: CN (occurrence: CN)
  Receive Date: 20231107
  Receipt Date: 20231107
  Transmission Date: 20240110
  Serious: Yes (Other)
  Sender: FDA-Public Use
  Company Number: CN-AMGEN-CHNSP2023196635

PATIENT
  Age: 51 Year
  Sex: Female
  Weight: 69 kg

DRUGS (1)
  1. REPATHA [Suspect]
     Active Substance: EVOLOCUMAB
     Indication: Lipids abnormal
     Dosage: 140 MILLIGRAM (FREQUENCY 1)
     Route: 058
     Dates: start: 20231018, end: 20231018

REACTIONS (2)
  - Chest discomfort [Recovered/Resolved]
  - Pyrexia [Recovered/Resolved]

NARRATIVE: CASE EVENT DATE: 20231018
